FAERS Safety Report 12153492 (Version 1)
Quarter: 2016Q1

REPORT INFORMATION
  Report Type: Spontaneous
  Country: US (occurrence: US)
  Receive Date: 20160306
  Receipt Date: 20160306
  Transmission Date: 20160526
  Serious: Yes (Hospitalization, Other)
  Sender: FDA-Public Use
  Company Number: US-ELI_LILLY_AND_COMPANY-US201602007800

PATIENT
  Age: 85 Year
  Sex: Female

DRUGS (1)
  1. CYMBALTA [Suspect]
     Active Substance: DULOXETINE HYDROCHLORIDE
     Indication: STRESS
     Dosage: 30 MG, UNK
     Route: 065

REACTIONS (7)
  - Pulmonary thrombosis [Unknown]
  - Abasia [Unknown]
  - Thrombosis [Unknown]
  - Abdominal neoplasm [Unknown]
  - Fall [Unknown]
  - Depressed level of consciousness [Unknown]
  - Cystitis [Unknown]
